FAERS Safety Report 4428426-0 (Version None)
Quarter: 2004Q3

REPORT INFORMATION
  Report Type: 
  Country: None (occurrence: None)
  Receive Date: 20040818
  Receipt Date: 20040805
  Transmission Date: 20050211
  Serious: Yes (Hospitalization)
  Sender: FDA-Public Use
  Company Number: FR-BRISTOL-MYERS SQUIBB COMPANY-12661815

PATIENT
  Age: 77 Year
  Sex: Male

DRUGS (10)
  1. BRISTOPEN INJ 1 G [Suspect]
     Indication: SEPSIS
     Route: 042
     Dates: start: 20040603, end: 20040604
  2. CIPROFLOXACIN [Suspect]
     Indication: SEPSIS
     Route: 042
     Dates: start: 20040603, end: 20040604
  3. PRAVASTATIN [Concomitant]
  4. ISOPTIN [Concomitant]
     Indication: ANXIETY
  5. OMEPRAZOLE [Concomitant]
  6. INSULATARD NPH HUMAN [Concomitant]
     Indication: DIABETES MELLITUS
     Dosage: 100 IU/ML
     Route: 042
  7. CIBACENE [Concomitant]
     Indication: HYPERTENSION
  8. PREVISCAN [Concomitant]
  9. LEVOTHYROXINE SODIUM [Concomitant]
  10. DITROPAN [Concomitant]

REACTIONS (2)
  - EPILEPSY [None]
  - HYPONATRAEMIA [None]
